FAERS Safety Report 9053898 (Version 1)
Quarter: 2013Q1

REPORT INFORMATION
  Report Type: Spontaneous
  Country: US (occurrence: None)
  Receive Date: 20130201
  Receipt Date: 20130201
  Transmission Date: 20140127
  Serious: Yes (Hospitalization)
  Sender: FDA-Public Use
  Company Number: None

PATIENT
  Age: 70 Year
  Sex: Male
  Weight: 106.5 kg

DRUGS (2)
  1. LIRAGLUTIDE [Suspect]
     Indication: TYPE 2 DIABETES MELLITUS
     Route: 059
  2. PREDNISONE [Suspect]
     Indication: ANGIOEDEMA
     Route: 048
     Dates: start: 20120926, end: 20120930

REACTIONS (3)
  - Pancreatitis [None]
  - Abdominal pain [None]
  - Gastrointestinal pain [None]
